FAERS Safety Report 7562266-9 (Version None)
Quarter: 2011Q2

REPORT INFORMATION
  Report Type: 
  Country: None (occurrence: None)
  Receive Date: 20110620
  Receipt Date: 20110620
  Transmission Date: 20111010
  Serious: Yes (Other)
  Sender: FDA-Public Use
  Company Number: None

PATIENT
  Age: 36 Year
  Sex: Female
  Weight: 72.5755 kg

DRUGS (1)
  1. CHANTIX [Suspect]
     Indication: SMOKING CESSATION THERAPY
     Dosage: 1 MG 2XDAY PO
     Route: 048
     Dates: start: 20110609, end: 20110619

REACTIONS (5)
  - PAIN IN EXTREMITY [None]
  - INSOMNIA [None]
  - ARTHRALGIA [None]
  - GAIT DISTURBANCE [None]
  - BACK PAIN [None]
